FAERS Safety Report 18832459 (Version 1)
Quarter: 2021Q1

REPORT INFORMATION
  Report Type: Spontaneous
  Country: US (occurrence: US)
  Receive Date: 20210203
  Receipt Date: 20210203
  Transmission Date: 20210419
  Serious: No
  Sender: FDA-Public Use
  Company Number: US-RECORDATI RARE DISEASES-2106225

PATIENT
  Sex: Male

DRUGS (1)
  1. CYSTADANE [Suspect]
     Active Substance: BETAINE
     Indication: HOMOCYSTINURIA

REACTIONS (5)
  - Product dose omission issue [Unknown]
  - Nausea [Unknown]
  - Anxiety [Unknown]
  - Gastric disorder [Unknown]
  - Abdominal distension [Unknown]
